FAERS Safety Report 15411600 (Version 3)
Quarter: 2018Q4

REPORT INFORMATION
  Report Type: Report from Study
  Country: US (occurrence: US)
  Receive Date: 20180921
  Receipt Date: 20181002
  Transmission Date: 20190204
  Serious: Yes (Hospitalization)
  Sender: FDA-Public Use
  Company Number: US-GILEAD-2018-0363229

PATIENT
  Age: 63 Year
  Sex: Male
  Weight: 138.32 kg

DRUGS (1)
  1. AMBRISENTAN [Suspect]
     Active Substance: AMBRISENTAN
     Indication: PRODUCT USED FOR UNKNOWN INDICATION
     Dosage: 10 MG, QD
     Route: 065
     Dates: start: 20180802

REACTIONS (13)
  - Nasal congestion [Unknown]
  - Confusional state [Unknown]
  - Heart rate irregular [Unknown]
  - Chest discomfort [Recovered/Resolved]
  - Urticaria [Recovered/Resolved]
  - Swelling face [Recovered/Resolved]
  - Swollen tongue [Unknown]
  - Gait disturbance [Unknown]
  - Eye swelling [Unknown]
  - Flushing [Unknown]
  - Dyspnoea [Unknown]
  - Lip swelling [Unknown]
  - Throat tightness [Unknown]

NARRATIVE: CASE EVENT DATE: 20180908
